FAERS Safety Report 16645515 (Version 1)
Quarter: 2019Q3

REPORT INFORMATION
  Report Type: Spontaneous
  Country: US (occurrence: US)
  Receive Date: 20190730
  Receipt Date: 20190730
  Transmission Date: 20191004
  Serious: Yes (Death, Hospitalization, Other)
  Sender: FDA-Public Use
  Company Number: US-AMGEN-USASP2019118806

PATIENT
  Age: 75 Year
  Sex: Female

DRUGS (9)
  1. PEGFILGRASTIM [Suspect]
     Active Substance: PEGFILGRASTIM
     Indication: NEUTROPENIA
     Dosage: UNK
     Route: 065
     Dates: start: 2018
  2. PREDNISONE. [Suspect]
     Active Substance: PREDNISONE
     Dosage: 80 MILLIGRAM, QD
     Route: 065
  3. PREDNISONE. [Suspect]
     Active Substance: PREDNISONE
     Dosage: 50 MILLIGRAM, QD
     Route: 065
  4. FILGRASTIM [Suspect]
     Active Substance: FILGRASTIM
     Indication: NEUTROPENIA
     Dosage: UNK UNK, QD
     Route: 065
     Dates: start: 2018
  5. PREDNISONE. [Suspect]
     Active Substance: PREDNISONE
     Indication: NEUTROPENIA
     Dosage: 60 MILLIGRAM, QD (EQUIVALENT TO APPROXIMATELY 1 MG/KG)
     Route: 065
     Dates: start: 2018
  6. PREDNISONE. [Suspect]
     Active Substance: PREDNISONE
     Dosage: 30 MILLIGRAM, QD
     Route: 065
  7. MYCOPHENOLATE MOFETIL. [Concomitant]
     Active Substance: MYCOPHENOLATE MOFETIL
     Indication: NEUTROPENIA
     Dosage: UNK
     Dates: start: 2018
  8. PREDNISONE. [Suspect]
     Active Substance: PREDNISONE
     Dosage: 40 MILLIGRAM, QD
     Route: 065
  9. NIVOLUMAB [Suspect]
     Active Substance: NIVOLUMAB
     Indication: MALIGNANT MELANOMA STAGE III
     Dosage: 3 MILLIGRAM/KILOGRAM, Q2WK
     Route: 065
     Dates: start: 201801

REACTIONS (13)
  - Death [Fatal]
  - Febrile neutropenia [Recovering/Resolving]
  - Drug ineffective [Unknown]
  - Streptococcus test positive [Unknown]
  - Dysphagia [Recovering/Resolving]
  - Immunosuppression [Unknown]
  - Asthenia [Recovering/Resolving]
  - Neurological symptom [Recovering/Resolving]
  - Neuropathy peripheral [Not Recovered/Not Resolved]
  - Fatigue [Recovering/Resolving]
  - Off label use [Unknown]
  - Tremor [Recovering/Resolving]
  - Transaminases increased [Recovering/Resolving]

NARRATIVE: CASE EVENT DATE: 2018
